FAERS Safety Report 6523686-4 (Version None)
Quarter: 2009Q4

REPORT INFORMATION
  Report Type: 
  Country: None (occurrence: None)
  Receive Date: 20091231
  Receipt Date: 20091207
  Transmission Date: 20100525
  Serious: Yes (Hospitalization, Other)
  Sender: FDA-Public Use
  Company Number: US-NOVOPROD-293071

PATIENT
  Sex: Female
  Weight: 83.5 kg

DRUGS (4)
  1. SIBA FLEXPEN [Suspect]
     Indication: TYPE 1 DIABETES MELLITUS
     Dosage: 19 U, QD AT HS
     Route: 058
     Dates: start: 20091014, end: 20091018
  2. SIBA FLEXPEN [Suspect]
     Dosage: 20 UNK, AT BEDTIME
     Route: 058
     Dates: end: 20091018
  3. NOVOLOG [Suspect]
     Indication: TYPE 1 DIABETES MELLITUS
     Dosage: 12 U, QD
     Route: 058
     Dates: start: 20091014, end: 20091019
  4. ASPIRIN [Concomitant]
     Indication: HEADACHE
     Dosage: 162 MG, SINGLE
     Route: 048
     Dates: start: 20091018, end: 20091018

REACTIONS (1)
  - EPISTAXIS [None]
